FAERS Safety Report 11075356 (Version 3)
Quarter: 2015Q2

REPORT INFORMATION
  Report Type: Report from Study
  Country: US (occurrence: US)
  Receive Date: 20150429
  Receipt Date: 20150612
  Transmission Date: 20150821
  Serious: Yes (Hospitalization)
  Sender: FDA-Public Use
  Company Number: US-SA-2015SA054139

PATIENT
  Age: 77 Year
  Sex: Female

DRUGS (1)
  1. AUBAGIO [Suspect]
     Active Substance: TERIFLUNOMIDE
     Indication: MULTIPLE SCLEROSIS
     Route: 048
     Dates: start: 20141221, end: 20150430

REACTIONS (6)
  - Malaise [Unknown]
  - Liver disorder [Recovering/Resolving]
  - Renal disorder [Recovering/Resolving]
  - Hepatic enzyme increased [Unknown]
  - Blood pressure increased [Recovered/Resolved]
  - Coma [Recovering/Resolving]

NARRATIVE: CASE EVENT DATE: 2015
